FAERS Safety Report 23545048 (Version 1)
Quarter: 2024Q1

REPORT INFORMATION
  Report Type: Spontaneous
  Country: GB (occurrence: GB)
  Receive Date: 20240220
  Receipt Date: 20240220
  Transmission Date: 20240410
  Serious: Yes (Other)
  Sender: FDA-Public Use
  Company Number: GB-Ascend Therapeutics US, LLC-2153444

PATIENT
  Sex: Female

DRUGS (3)
  1. ESTROGEL [Suspect]
     Active Substance: ESTRADIOL
     Route: 065
  2. ESTRADIOL [Suspect]
     Active Substance: ESTRADIOL
     Route: 065
  3. ESTRADIOL [Suspect]
     Active Substance: ESTRADIOL
     Route: 065

REACTIONS (7)
  - Suicidal ideation [Unknown]
  - Product label issue [Unknown]
  - Product dispensing error [Unknown]
  - Incorrect dose administered by product [Unknown]
  - Anxiety [Unknown]
  - Depression [Unknown]
  - Stress [Unknown]
